FAERS Safety Report 7704253-3 (Version None)
Quarter: 2011Q3

REPORT INFORMATION
  Report Type: 
  Country: None (occurrence: None)
  Receive Date: 20110823
  Receipt Date: 20110819
  Transmission Date: 20111222
  Serious: Yes (Other)
  Sender: FDA-Public Use
  Company Number: US-SANOFI-AVENTIS-2011SA053509

PATIENT
  Sex: Female

DRUGS (1)
  1. PLAVIX [Suspect]
     Route: 048
     Dates: start: 20010101

REACTIONS (3)
  - TRANSIENT ISCHAEMIC ATTACK [None]
  - INCORRECT STORAGE OF DRUG [None]
  - DRUG INEFFECTIVE [None]
